FAERS Safety Report 4660360-3 (Version None)
Quarter: 2005Q2

REPORT INFORMATION
  Report Type: 
  Country: None (occurrence: None)
  Receive Date: 20050427
  Receipt Date: 20050328
  Transmission Date: 20051028
  Serious: No
  Sender: FDA-Public Use
  Company Number: 213434

PATIENT
  Age: 31 Year
  Sex: Male

DRUGS (1)
  1. XOLAIR [Suspect]
     Indication: ASTHMA
     Dosage: 1.85 ML, QW, SUBCUTANEOS
     Route: 058
     Dates: start: 20041201

REACTIONS (1)
  - NEUTROPHIL COUNT INCREASED [None]
